FAERS Safety Report 16784992 (Version 1)
Quarter: 2019Q3

REPORT INFORMATION
  Report Type: Spontaneous
  Country: US (occurrence: US)
  Receive Date: 20190909
  Receipt Date: 20190909
  Transmission Date: 20191005
  Serious: Yes (Other)
  Sender: FDA-Public Use
  Company Number: US-BAYER-2019-160557

PATIENT
  Age: 34 Year
  Sex: Female
  Weight: 73 kg

DRUGS (1)
  1. BAYER ASPIRIN [Suspect]
     Active Substance: ASPIRIN
     Indication: PAIN
     Dosage: 12 DF, ACCORDING TO LABELED DIRECTIONS
     Dates: start: 2019

REACTIONS (3)
  - Deafness [Unknown]
  - Incorrect product administration duration [Unknown]
  - Tinnitus [Unknown]

NARRATIVE: CASE EVENT DATE: 2019
